FAERS Safety Report 7913194-8 (Version None)
Quarter: 2011Q4

REPORT INFORMATION
  Report Type: 
  Country: None (occurrence: None)
  Receive Date: 20111114
  Receipt Date: 20111107
  Transmission Date: 20120403
  Serious: Yes (Life-Threatening)
  Sender: FDA-Public Use
  Company Number: PHHY2011PL098230

PATIENT
  Sex: Male
  Weight: 75 kg

DRUGS (1)
  1. AMOXICILLIN AND CLAVULANATE POTASSIUM [Suspect]
     Indication: CRANIOCEREBRAL INJURY
     Dosage: 3.6 G, DAILY DOSE
     Route: 042
     Dates: start: 20111014, end: 20111016

REACTIONS (1)
  - CARDIAC ARREST [None]
